FAERS Safety Report 9999993 (Version 2)
Quarter: 2014Q1

REPORT INFORMATION
  Report Type: Spontaneous
  Country: US (occurrence: US)
  Receive Date: 20140312
  Receipt Date: 20140312
  Transmission Date: 20141002
  Serious: No
  Sender: FDA-Public Use
  Company Number: US-GILEAD-2012-0058287

PATIENT
  Sex: Male

DRUGS (3)
  1. LETAIRIS [Suspect]
     Indication: COR PULMONALE CHRONIC
     Dosage: 10 MG, QD
     Route: 048
     Dates: start: 20120615
  2. LETAIRIS [Suspect]
     Dates: start: 20120615
  3. ADCIRCA [Concomitant]

REACTIONS (3)
  - Alopecia [Unknown]
  - Bladder disorder [Unknown]
  - Urine output decreased [Unknown]
